FAERS Safety Report 14665122 (Version 1)
Quarter: 2018Q1

REPORT INFORMATION
  Report Type: Spontaneous
  Country: US (occurrence: US)
  Receive Date: 20180320
  Receipt Date: 20180320
  Transmission Date: 20180509
  Serious: No
  Sender: FDA-Public Use
  Company Number: None

PATIENT
  Age: 63 Year
  Sex: Female

DRUGS (1)
  1. ESTRADIOL VAGINAL [Suspect]
     Active Substance: ESTRADIOL
     Dosage: ?          OTHER FREQUENCY:TWICE WEEKLY;?
     Route: 067

REACTIONS (4)
  - Muscle spasms [None]
  - Device malfunction [None]
  - Haemorrhage [None]
  - Product substitution issue [None]

NARRATIVE: CASE EVENT DATE: 20180319
